FAERS Safety Report 13788998 (Version 1)
Quarter: 2017Q3

REPORT INFORMATION
  Report Type: Spontaneous
  Country: US (occurrence: US)
  Receive Date: 20170725
  Receipt Date: 20170725
  Transmission Date: 20171127
  Serious: Yes (Hospitalization)
  Sender: FDA-Public Use
  Company Number: US-UNITED THERAPEUTICS-UNT-2016-020040

PATIENT
  Age: 53 Year
  Sex: Male
  Weight: 106.58 kg

DRUGS (1)
  1. REMODULIN [Suspect]
     Active Substance: TREPROSTINIL
     Indication: PULMONARY ARTERIAL HYPERTENSION
     Dosage: 0.070 ?G/KG, CONTINUING
     Route: 058
     Dates: start: 20120828

REACTIONS (4)
  - Nausea [Unknown]
  - Vomiting [Unknown]
  - Headache [Unknown]
  - Device issue [Unknown]

NARRATIVE: CASE EVENT DATE: 20170106
